FAERS Safety Report 22612651 (Version 1)
Quarter: 2023Q2

REPORT INFORMATION
  Report Type: Spontaneous
  Country: FR (occurrence: FR)
  Receive Date: 20230617
  Receipt Date: 20230617
  Transmission Date: 20230722
  Serious: Yes (Hospitalization, Other)
  Sender: FDA-Public Use
  Company Number: FR-AMGEN-FRASP2023101800

PATIENT
  Age: 53 Year
  Sex: Female
  Weight: 63 kg

DRUGS (3)
  1. KYPROLIS [Suspect]
     Active Substance: CARFILZOMIB
     Indication: Plasma cell myeloma
     Dosage: 45 MILLIGRAM (CYCLICAL)
     Route: 040
     Dates: start: 202206, end: 20230321
  2. POMALIDOMIDE [Concomitant]
     Active Substance: POMALIDOMIDE
     Indication: Product used for unknown indication
     Dosage: 84 MILLIGRAM, QMO
     Route: 048
     Dates: start: 202206, end: 20230325
  3. Neodex [Concomitant]
     Indication: Product used for unknown indication
     Dosage: 40 MILLIGRAM (CYCLICAL)
     Route: 048
     Dates: start: 202206, end: 20230321

REACTIONS (2)
  - Mixed liver injury [Recovered/Resolved]
  - Acute kidney injury [Recovered/Resolved]

NARRATIVE: CASE EVENT DATE: 20230323
